FAERS Safety Report 18975965 (Version 2)
Quarter: 2021Q1

REPORT INFORMATION
  Report Type: Spontaneous
  Country: US (occurrence: US)
  Receive Date: 20210305
  Receipt Date: 20210325
  Transmission Date: 20210420
  Serious: No
  Sender: FDA-Public Use
  Company Number: US-TEVA-2021-US-1886452

PATIENT
  Sex: Female

DRUGS (2)
  1. TREPROSTINIL INJECTION TEVA [Suspect]
     Active Substance: TREPROSTINIL
     Indication: PULMONARY ARTERIAL HYPERTENSION
     Dosage: 50 NG/KG/MIN CONTINUOUS INTRAVENOUS
     Route: 042
     Dates: start: 20200608
  2. CADD LEGACY PUMP [Concomitant]

REACTIONS (3)
  - Injection site swelling [Unknown]
  - Injection site pain [Unknown]
  - Localised infection [Unknown]
